FAERS Safety Report 23967085 (Version 1)
Quarter: 2024Q2

REPORT INFORMATION
  Report Type: Spontaneous
  Country: US (occurrence: US)
  Receive Date: 20240612
  Receipt Date: 20240612
  Transmission Date: 20240716
  Serious: No
  Sender: FDA-Public Use
  Company Number: US-002147023-NVSC2024US122433

PATIENT
  Age: 85 Year
  Sex: Female

DRUGS (1)
  1. INCLISIRAN [Suspect]
     Active Substance: INCLISIRAN
     Indication: Hyperlipidaemia
     Dosage: 284 MG (RECEIVED FIRST DOSE, AND THEN THIS DOSE WAS THE 90 DAY DOSE)
     Route: 065
     Dates: start: 20240603, end: 20240603

REACTIONS (4)
  - Back pain [Unknown]
  - Nausea [Unknown]
  - Cough [Unknown]
  - Dyspnoea [Unknown]
